FAERS Safety Report 22292125 (Version 3)
Quarter: 2023Q2

REPORT INFORMATION
  Report Type: Report from Study
  Country: US (occurrence: US)
  Receive Date: 20230508
  Receipt Date: 20230606
  Transmission Date: 20230721
  Serious: No
  Sender: FDA-Public Use
  Company Number: US-DECIPHERA PHARMACEUTICALS LLC-2023US000366

PATIENT
  Sex: Male

DRUGS (1)
  1. QINLOCK [Suspect]
     Active Substance: RIPRETINIB
     Indication: Gastrointestinal stromal tumour
     Dosage: 150 MILLIGRAM, QD
     Route: 048
     Dates: start: 20230321

REACTIONS (9)
  - Skin exfoliation [Unknown]
  - Influenza [Unknown]
  - Neoplasm progression [Unknown]
  - Hyperkeratosis [Unknown]
  - Palmar-plantar erythrodysaesthesia syndrome [Unknown]
  - Dry skin [Unknown]
  - Vomiting [Unknown]
  - Adverse event [Unknown]
  - Product dose omission issue [Unknown]

NARRATIVE: CASE EVENT DATE: 20230501
